FAERS Safety Report 14963565 (Version 1)
Quarter: 2018Q2

REPORT INFORMATION
  Report Type: Spontaneous
  Country: HR (occurrence: HR)
  Receive Date: 20180601
  Receipt Date: 20180601
  Transmission Date: 20180711
  Serious: Yes (Hospitalization)
  Sender: FDA-Public Use
  Company Number: HR-ASTRAZENECA-2018SE69645

PATIENT
  Age: 67 Year
  Sex: Female

DRUGS (6)
  1. XANAX [Concomitant]
     Active Substance: ALPRAZOLAM
     Dosage: 0.5MG AS REQUIRED
     Route: 048
  2. SEROQUEL XR [Suspect]
     Active Substance: QUETIAPINE FUMARATE
     Route: 048
  3. LAMAL [Interacting]
     Active Substance: LAMOTRIGINE
     Route: 048
  4. AKINETON [Interacting]
     Active Substance: BIPERIDEN HYDROCHLORIDE
     Route: 048
  5. AMYZOL [Interacting]
     Active Substance: AMITRIPTYLINE
     Route: 048
  6. PALIPERIDONE PALMITATE [Interacting]
     Active Substance: PALIPERIDONE PALMITATE
     Dosage: 100.0MG UNKNOWN
     Route: 030

REACTIONS (1)
  - Gastrointestinal hypomotility [Recovering/Resolving]

NARRATIVE: CASE EVENT DATE: 20180430
